FAERS Safety Report 6105758-1 (Version None)
Quarter: 2009Q1

REPORT INFORMATION
  Report Type: 
  Country: None (occurrence: None)
  Receive Date: 20090304
  Receipt Date: 20090304
  Transmission Date: 20090719
  Serious: No
  Sender: FDA-Public Use
  Company Number: None

PATIENT
  Sex: Male
  Weight: 74.09 kg

DRUGS (2)
  1. LISINOPRIL [Suspect]
     Dosage: 10MG TABLET QD ORAL
     Route: 048
     Dates: start: 20070412, end: 20090226
  2. CIALIS [Concomitant]

REACTIONS (1)
  - FATIGUE [None]
